FAERS Safety Report 6408937-9 (Version None)
Quarter: 2009Q4

REPORT INFORMATION
  Report Type: 
  Country: None (occurrence: None)
  Receive Date: 20091021
  Receipt Date: 20090505
  Transmission Date: 20100525
  Serious: Yes (Other)
  Sender: FDA-Public Use
  Company Number: US-ASTRAZENECA-2009UW11356

PATIENT
  Age: 14 Year
  Sex: Male

DRUGS (2)
  1. MEROPENEM [Suspect]
     Indication: MENINGITIS STREPTOCOCCAL
     Route: 042
  2. VANCOMYCIN [Suspect]
     Indication: MENINGITIS STREPTOCOCCAL

REACTIONS (1)
  - LEUKOPENIA [None]
